FAERS Safety Report 10523997 (Version 1)
Quarter: 2014Q4

REPORT INFORMATION
  Report Type: Spontaneous
  Country: US (occurrence: None)
  Receive Date: 20141015
  Receipt Date: 20141015
  Transmission Date: 20150528
  Serious: No
  Sender: FDA-Public Use
  Company Number: None

PATIENT
  Age: 33 Year
  Sex: Female
  Weight: 113.4 kg

DRUGS (1)
  1. ORACEA [Suspect]
     Active Substance: DOXYCYCLINE
     Indication: DERMATITIS
     Dosage: 1 PILL ONCE DAILY TAKEN BY MOUTH
     Route: 048
     Dates: start: 20140901, end: 20141001

REACTIONS (4)
  - Bone disorder [None]
  - Drug ineffective [None]
  - Discomfort [None]
  - Toothache [None]

NARRATIVE: CASE EVENT DATE: 20141001
